FAERS Safety Report 7273188-5 (Version None)
Quarter: 2011Q1

REPORT INFORMATION
  Report Type: 
  Country: None (occurrence: None)
  Receive Date: 20110203
  Receipt Date: 20110126
  Transmission Date: 20110831
  Serious: Yes (Death)
  Sender: FDA-Public Use
  Company Number: FR-MPIJNJ-2011-00187

PATIENT

DRUGS (10)
  1. DEXAMETHASONE [Concomitant]
     Indication: MULTIPLE MYELOMA
     Dosage: 10 MG, UNK
     Route: 048
     Dates: start: 20091214, end: 20101115
  2. DEXAMETHASONE [Concomitant]
     Dosage: 40 MG, UNK
     Route: 048
     Dates: start: 20101220, end: 20101220
  3. NEXIUM [Concomitant]
     Dosage: UNK
     Dates: start: 20100809
  4. FLUCONAZOLE [Concomitant]
     Dosage: UNK
     Dates: start: 20101208
  5. VELCADE [Suspect]
     Indication: MULTIPLE MYELOMA
     Dosage: 1.3 MG/M2, UNK
     Route: 065
     Dates: start: 20080721, end: 20101220
  6. CYCLOPHOSPHAMIDE [Concomitant]
     Indication: MULTIPLE MYELOMA
     Dosage: UNK
     Dates: start: 20100730, end: 20101115
  7. LAROXYL [Concomitant]
     Dosage: UNK
     Dates: start: 20080731
  8. ZOMETA [Concomitant]
     Dosage: UNK
     Dates: start: 20080731
  9. GAVISCON                           /00237601/ [Concomitant]
     Dosage: UNK
     Dates: start: 20100809
  10. KAYEXALATE [Concomitant]
     Dosage: UNK
     Dates: start: 20101208, end: 20101208

REACTIONS (1)
  - HAEMODYNAMIC INSTABILITY [None]
